FAERS Safety Report 8453128-3 (Version None)
Quarter: 2012Q2

REPORT INFORMATION
  Report Type: 
  Country: None (occurrence: None)
  Receive Date: 20120620
  Receipt Date: 20120509
  Transmission Date: 20120825
  Serious: No
  Sender: FDA-Public Use
  Company Number: US-VERTEX PHARMACEUTICALS INC.-AE-2012-006676

PATIENT
  Age: 55 Year
  Sex: Female

DRUGS (5)
  1. INCIVEK [Suspect]
     Indication: HEPATITIS C
     Route: 048
  2. RIBAVIRIN [Concomitant]
     Indication: HEPATITIS C
  3. INTERFERON [Concomitant]
     Indication: HEPATITIS C
  4. EPZICOM [Concomitant]
  5. VIRACEPT [Concomitant]

REACTIONS (2)
  - ABNORMAL DREAMS [None]
  - OFF LABEL USE [None]
